FAERS Safety Report 20115440 (Version 1)
Quarter: 2021Q4

REPORT INFORMATION
  Report Type: Other
  Country: CA (occurrence: CA)
  Receive Date: 20211126
  Receipt Date: 20211126
  Transmission Date: 20220303
  Serious: Yes (Disabling)
  Sender: FDA-Public Use
  Company Number: CA-CELLTRION INC.-2021CA015713

PATIENT

DRUGS (5)
  1. HERZUMA [Suspect]
     Active Substance: TRASTUZUMAB-PKRB
     Indication: Breast cancer
     Dosage: 597 MILLIGRAM
     Route: 042
  2. AMITRIPTYLINE [Concomitant]
     Active Substance: AMITRIPTYLINE
  3. DEXILANT [Concomitant]
     Active Substance: DEXLANSOPRAZOLE
  4. DOMPERIDONE [Concomitant]
     Active Substance: DOMPERIDONE
  5. TRINTELLIX [Concomitant]
     Active Substance: VORTIOXETINE HYDROBROMIDE

REACTIONS (6)
  - Loss of personal independence in daily activities [Recovered/Resolved]
  - Mobility decreased [Recovered/Resolved]
  - Musculoskeletal stiffness [Recovered/Resolved]
  - Muscle spasms [Recovered/Resolved]
  - Pain [Recovered/Resolved]
  - Urticaria [Recovered/Resolved]
